FAERS Safety Report 4387801-3 (Version None)
Quarter: 2004Q2

REPORT INFORMATION
  Report Type: 
  Country: None (occurrence: None)
  Receive Date: 20040630
  Receipt Date: 20040618
  Transmission Date: 20050107
  Serious: Yes (Death, Life-Threatening, Hospitalization)
  Sender: FDA-Public Use
  Company Number: FR-GLAXOSMITHKLINE-B0336111A

PATIENT
  Age: 48 Year
  Sex: Male
  Weight: 61 kg

DRUGS (8)
  1. ZOVIRAX [Suspect]
     Indication: ANTIVIRAL PROPHYLAXIS
     Dosage: 1500MG PER DAY
     Route: 042
     Dates: start: 20040317, end: 20040323
  2. ACUPAN [Suspect]
     Indication: GENERAL PHYSICAL CONDITION ABNORMAL
     Dosage: 6UNIT PER DAY
     Route: 042
     Dates: start: 20040319, end: 20040323
  3. TAZOCILLINE [Suspect]
     Indication: ANTIBACTERIAL PROPHYLAXIS
     Dosage: 3UNIT PER DAY
     Route: 042
     Dates: start: 20040304, end: 20040322
  4. TRIFLUCAN [Suspect]
     Indication: ANTIFUNGAL PROPHYLAXIS
     Dosage: 100MG PER DAY
     Route: 048
     Dates: start: 20040216, end: 20040315
  5. MOPRAL [Suspect]
     Indication: PROPHYLAXIS
     Dosage: 40MG PER DAY
     Route: 042
     Dates: start: 20040309, end: 20040323
  6. GRANOCYTE [Suspect]
     Indication: AGRANULOCYTOSIS
     Dosage: 1UNIT PER DAY
     Route: 058
     Dates: start: 20040313, end: 20040322
  7. CLINOMEL [Concomitant]
     Indication: PARENTERAL NUTRITION
     Dosage: 1L PER DAY
     Route: 042
     Dates: start: 20040227, end: 20040315
  8. KIDROLASE [Concomitant]
     Dates: start: 20040224, end: 20040313

REACTIONS (9)
  - CHOLESTASIS [None]
  - CIRCULATORY COLLAPSE [None]
  - HEPATIC STEATOSIS [None]
  - HEPATOMEGALY [None]
  - HYPOTHERMIA [None]
  - JAUNDICE [None]
  - LIPASE INCREASED [None]
  - LIVER DISORDER [None]
  - PELIOSIS HEPATIS [None]
